FAERS Safety Report 15009964 (Version 1)
Quarter: 2018Q2

REPORT INFORMATION
  Report Type: Spontaneous
  Country: FR (occurrence: FR)
  Receive Date: 20180614
  Receipt Date: 20180614
  Transmission Date: 20180711
  Serious: Yes (Hospitalization)
  Sender: FDA-Public Use
  Company Number: FR-TEVA-2018-FR-906633

PATIENT
  Age: 36 Year
  Sex: Female

DRUGS (6)
  1. PREDNISONE. [Concomitant]
     Active Substance: PREDNISONE
     Indication: SELF-MEDICATION
     Route: 048
     Dates: start: 20180314
  2. AMOXICILLIN. [Suspect]
     Active Substance: AMOXICILLIN
     Indication: SELF-MEDICATION
     Route: 048
     Dates: start: 20180313
  3. BACTRIM [Suspect]
     Active Substance: SULFAMETHOXAZOLE\TRIMETHOPRIM
     Indication: DIVERTICULITIS
     Route: 048
     Dates: start: 20180308
  4. IMODIUM [Suspect]
     Active Substance: LOPERAMIDE HYDROCHLORIDE
     Indication: DIVERTICULITIS
     Route: 048
     Dates: start: 20180308
  5. ZYRTEC [Concomitant]
     Active Substance: CETIRIZINE HYDROCHLORIDE
     Indication: SELF-MEDICATION
     Route: 048
     Dates: start: 20180309
  6. DEBRIDAT [Suspect]
     Active Substance: TRIMEBUTINE MALEATE
     Indication: DIVERTICULITIS
     Route: 048
     Dates: start: 20180308

REACTIONS (4)
  - Pyrexia [Recovered/Resolved]
  - Eosinophilia [Recovered/Resolved]
  - Pruritus [Recovered/Resolved]
  - Rash maculo-papular [Recovering/Resolving]

NARRATIVE: CASE EVENT DATE: 20180309
